FAERS Safety Report 8536847 (Version 6)
Quarter: 2013Q1

REPORT INFORMATION
  Report Type: Spontaneous
  Country: US (occurrence: None)
  Receive Date: 20120419
  Receipt Date: 20121212
  Transmission Date: 20140127
  Serious: Yes (Life-Threatening, Hospitalization, Disabling, Other)
  Sender: FDA-Public Use
  Company Number: DKLU1076767

PATIENT
  Age: 8 Year
  Sex: Male
  Weight: 55 kg

DRUGS (8)
  1. ONFI [Suspect]
     Indication: CONVULSION
     Dosage: ORAL, AT BEDTIME, ORAL, 10 MG MILLIGRAM(S), AT BEDTIME, ORAL
     Route: 048
     Dates: start: 20120103
  2. ONFI [Suspect]
     Indication: EPILEPSY
     Dosage: ORAL, AT BEDTIME, ORAL, 10 MG MILLIGRAM(S), AT BEDTIME, ORAL
     Route: 048
     Dates: start: 20120103
  3. DEPAKENE [Concomitant]
  4. DEPAKOTE [Concomitant]
  5. NEURONTIN [Concomitant]
  6. TRAZODONE HYDROCHLORIDE [Concomitant]
  7. TOPAMAX [Concomitant]
  8. ZARONTIN [Concomitant]

REACTIONS (8)
  - Stevens-Johnson syndrome [None]
  - Toxic epidermal necrolysis [None]
  - Impetigo [None]
  - Skin graft [None]
  - Blindness [None]
  - Deformity [None]
  - Pain [None]
  - Dyspnoea [None]
